FAERS Safety Report 13898260 (Version 1)
Quarter: 2017Q3

REPORT INFORMATION
  Report Type: Spontaneous
  Country: US (occurrence: None)
  Receive Date: 20170823
  Receipt Date: 20170823
  Transmission Date: 20171127
  Serious: Yes (Hospitalization)
  Sender: FDA-Public Use
  Company Number: None

PATIENT
  Age: 24 Year
  Sex: Female

DRUGS (15)
  1. PRAVASTATIN. [Concomitant]
     Active Substance: PRAVASTATIN
  2. VITAMIN D3 [Concomitant]
     Active Substance: CHOLECALCIFEROL
  3. MULTIVITAMIN [Concomitant]
     Active Substance: VITAMINS
  4. CRANBERRY. [Concomitant]
     Active Substance: CRANBERRY
  5. IBRANCE [Suspect]
     Active Substance: PALBOCICLIB
     Indication: NEOPLASM MALIGNANT
     Route: 048
     Dates: start: 20170802
  6. BUPROPION. [Concomitant]
     Active Substance: BUPROPION
  7. ASPIRIN. [Concomitant]
     Active Substance: ASPIRIN
  8. GABAPENTIN. [Concomitant]
     Active Substance: GABAPENTIN
  9. NATEFLINIDE [Concomitant]
  10. SUCRALFATE. [Concomitant]
     Active Substance: SUCRALFATE
  11. ALLOPURINOL. [Concomitant]
     Active Substance: ALLOPURINOL
  12. HYDROCODONE [Concomitant]
     Active Substance: HYDROCODONE
  13. LETROZOLE. [Concomitant]
     Active Substance: LETROZOLE
  14. PANTOPRAZOLE [Concomitant]
     Active Substance: PANTOPRAZOLE
  15. TRAMADOL. [Concomitant]
     Active Substance: TRAMADOL

REACTIONS (1)
  - Fall [None]

NARRATIVE: CASE EVENT DATE: 201706
